FAERS Safety Report 22062940 (Version 2)
Quarter: 2023Q1

REPORT INFORMATION
  Report Type: Other
  Country: US (occurrence: None)
  Receive Date: 20230306
  Receipt Date: 20230307
  Transmission Date: 20230417
  Serious: No
  Sender: FDA-Public Use
  Company Number: US-ROCHE-3299912

PATIENT
  Age: 59 Year
  Sex: Male

DRUGS (1)
  1. OCREVUS [Suspect]
     Active Substance: OCRELIZUMAB
     Indication: Multiple sclerosis
     Dosage: 300MG DAY 1 AND 2WKS LATER, SUBSEQUENT DOSE OF 300MG VIALS (2) PREVIOUS DATE OF TREATMENT: 28/DEC/20
     Route: 065
     Dates: start: 20211228

REACTIONS (1)
  - COVID-19 [Not Recovered/Not Resolved]
